FAERS Safety Report 13111883 (Version 1)
Quarter: 2017Q1

REPORT INFORMATION
  Report Type: Spontaneous
  Country: BR (occurrence: BR)
  Receive Date: 20170113
  Receipt Date: 20170113
  Transmission Date: 20170428
  Serious: Yes (Death, Hospitalization, Other)
  Sender: FDA-Public Use
  Company Number: BR-UCBSA-2017001461

PATIENT
  Age: 62 Year
  Sex: Female
  Weight: 40 kg

DRUGS (5)
  1. INDATENS [Concomitant]
     Indication: HYPERTENSION
     Dosage: 10 MG, 2X/DAY (BID)
     Route: 048
     Dates: start: 2007, end: 20170102
  2. SIFROL [Concomitant]
     Active Substance: PRAMIPEXOLE
     Indication: PARKINSON^S DISEASE
     Dosage: 1 MG 1/2 AT MORNING AND 1/2 IN THE EVENING
     Route: 048
     Dates: start: 1995, end: 20170102
  3. NEUPRO [Suspect]
     Active Substance: ROTIGOTINE
     Indication: PARKINSON^S DISEASE
     Dosage: 4 MG, ONCE DAILY (QD)
     Route: 061
     Dates: start: 2016, end: 201607
  4. NEUPRO [Suspect]
     Active Substance: ROTIGOTINE
     Dosage: 6 MG, ONCE DAILY (QD)
     Route: 061
     Dates: start: 201607, end: 20170102
  5. PROLOPA HBS [Concomitant]
     Active Substance: BENSERAZIDE\LEVODOPA
     Indication: PARKINSON^S DISEASE
     Dosage: UNK  (STRENGTH: 200/50MG)
     Route: 048
     Dates: start: 1995, end: 20170102

REACTIONS (6)
  - Dehydration [Fatal]
  - Respiratory failure [Fatal]
  - Diarrhoea [Unknown]
  - Shock [Fatal]
  - Coma [Unknown]
  - Sepsis [Fatal]

NARRATIVE: CASE EVENT DATE: 20170101
